FAERS Safety Report 17629826 (Version 3)
Quarter: 2020Q4

REPORT INFORMATION
  Report Type: Spontaneous
  Country: US (occurrence: US)
  Receive Date: 20200406
  Receipt Date: 20201016
  Transmission Date: 20210113
  Serious: Yes (Hospitalization, Other)
  Sender: FDA-Public Use
  Company Number: US-PFIZER INC-2020137528

PATIENT
  Age: 80 Year
  Sex: Male
  Weight: 77.11 kg

DRUGS (2)
  1. AMIODARONE [Concomitant]
     Active Substance: AMIODARONE
     Indication: CARDIAC DISORDER
     Dosage: UNK
     Dates: end: 202003
  2. VYNDAQEL [Suspect]
     Active Substance: TAFAMIDIS MEGLUMINE
     Indication: AMYLOIDOSIS
     Dosage: 80 MG, DAILY(4 CAPSULES ONCE A DAY BY MOUTH)
     Route: 048
     Dates: start: 201912, end: 2020

REACTIONS (15)
  - Dementia [Unknown]
  - Weight decreased [Unknown]
  - Hallucination [Unknown]
  - Mental disorder [Unknown]
  - Confusional state [Unknown]
  - Fall [Unknown]
  - Body height decreased [Unknown]
  - Lung disorder [Unknown]
  - Condition aggravated [Unknown]
  - Product dose omission issue [Unknown]
  - Hypervigilance [Unknown]
  - Pain [Unknown]
  - Rib fracture [Unknown]
  - Urinary tract infection [Not Recovered/Not Resolved]
  - Dementia Alzheimer^s type [Unknown]

NARRATIVE: CASE EVENT DATE: 2019
